FAERS Safety Report 26120039 (Version 2)
Quarter: 2025Q4

REPORT INFORMATION
  Report Type: Spontaneous
  Country: US (occurrence: US)
  Receive Date: 20251204
  Receipt Date: 20251209
  Transmission Date: 20260117
  Serious: Yes (Hospitalization, Other)
  Sender: RANBAXY
  Company Number: US-SUN PHARMACEUTICAL INDUSTRIES LTD-2025R1-539405

PATIENT
  Age: 50 Year
  Sex: Female

DRUGS (1)
  1. DIPHENHYDRAMINE [Suspect]
     Active Substance: DIPHENHYDRAMINE
     Indication: Product used for unknown indication
     Dosage: UNK
     Route: 048

REACTIONS (1)
  - Cardiac arrest [Recovered/Resolved]
